FAERS Safety Report 10009725 (Version 1)
Quarter: 2014Q1

REPORT INFORMATION
  Report Type: Spontaneous
  Country: US (occurrence: US)
  Receive Date: 20140312
  Receipt Date: 20140312
  Transmission Date: 20141002
  Serious: No
  Sender: FDA-Public Use
  Company Number: US-INCYTE CORPORATION-2012IN002637

PATIENT
  Age: 71 Year
  Sex: Male

DRUGS (9)
  1. JAKAFI [Suspect]
     Indication: MYELOFIBROSIS
     Dosage: 10 MG, BID
     Dates: start: 20121204
  2. ACYCLOVIR [Concomitant]
  3. CITALOPRAM [Concomitant]
  4. DIGOXIN [Concomitant]
  5. METOPROLOL [Concomitant]
  6. TYLENOL [Concomitant]
  7. ASPIRIN [Concomitant]
     Dosage: 81 UNK, UNK
  8. IRON [Concomitant]
     Indication: SUPPLEMENTATION THERAPY
  9. CHLOROPHYLL [Concomitant]

REACTIONS (1)
  - Transfusion [Unknown]
